FAERS Safety Report 7394364-7 (Version None)
Quarter: 2011Q2

REPORT INFORMATION
  Report Type: 
  Country: None (occurrence: None)
  Receive Date: 20110405
  Receipt Date: 20110323
  Transmission Date: 20111010
  Serious: Yes (Other)
  Sender: FDA-Public Use
  Company Number: US-ELI_LILLY_AND_COMPANY-US201103006228

PATIENT
  Sex: Female

DRUGS (3)
  1. FOSAMAX [Concomitant]
  2. FORTEO [Suspect]
     Dosage: UNK
     Dates: start: 20090101
  3. RECLAST [Concomitant]
     Route: 042

REACTIONS (1)
  - HAMARTOMA [None]
